FAERS Safety Report 11986818 (Version 1)
Quarter: 2016Q1

REPORT INFORMATION
  Report Type: Spontaneous
  Country: US (occurrence: US)
  Receive Date: 20160202
  Receipt Date: 20160202
  Transmission Date: 20160526
  Serious: No
  Sender: FDA-Public Use
  Company Number: US-UCBSA-2015001248

PATIENT

DRUGS (1)
  1. KEPPRA [Suspect]
     Active Substance: LEVETIRACETAM
     Indication: PRODUCT USED FOR UNKNOWN INDICATION
     Dosage: DAILY DOSE: 4000 MG

REACTIONS (9)
  - Generalised tonic-clonic seizure [Unknown]
  - Migraine [Unknown]
  - Embolism [Unknown]
  - Inguinal hernia [Unknown]
  - Memory impairment [Recovering/Resolving]
  - Visual impairment [Unknown]
  - Petit mal epilepsy [Unknown]
  - Pain [Unknown]
  - Overdose [Unknown]
